FAERS Safety Report 5771485-3 (Version None)
Quarter: 2008Q2

REPORT INFORMATION
  Report Type: 
  Country: None (occurrence: None)
  Receive Date: 20080612
  Receipt Date: 20080612
  Transmission Date: 20081010
  Serious: Yes (Life-Threatening, Hospitalization)
  Sender: FDA-Public Use
  Company Number: None

PATIENT
  Age: 56 Year
  Sex: Male
  Weight: 99.7913 kg

DRUGS (1)
  1. TRAMADOL HCL [Suspect]
     Indication: PAIN
     Dosage: 1 OR 2  EVERY 6 HOURS INJ
     Dates: start: 20071015, end: 20080116

REACTIONS (12)
  - ARTHRITIS [None]
  - BLINDNESS TRANSIENT [None]
  - CEREBROVASCULAR ACCIDENT [None]
  - CONVULSION [None]
  - DRUG DISPENSING ERROR [None]
  - EXPIRED DRUG ADMINISTERED [None]
  - FATIGUE [None]
  - HEADACHE [None]
  - PAIN [None]
  - TRANSIENT ISCHAEMIC ATTACK [None]
  - TUNNEL VISION [None]
  - VISUAL ACUITY REDUCED [None]
